FAERS Safety Report 11428166 (Version 1)
Quarter: 2015Q3

REPORT INFORMATION
  Report Type: Spontaneous
  Country: US (occurrence: None)
  Receive Date: 20150827
  Receipt Date: 20150827
  Transmission Date: 20151125
  Serious: No
  Sender: FDA-Public Use
  Company Number: None

PATIENT
  Age: 61 Year
  Sex: Female

DRUGS (1)
  1. EXTAVIA [Suspect]
     Active Substance: INTERFERON BETA-1B
     Dosage: 0.3MG/VL
     Route: 058
     Dates: start: 20141028, end: 20150825

REACTIONS (4)
  - Depression [None]
  - Abdominal distension [None]
  - Alopecia [None]
  - Pain [None]

NARRATIVE: CASE EVENT DATE: 20150714
